FAERS Safety Report 9009858 (Version 6)
Quarter: 2014Q1

REPORT INFORMATION
  Report Type: Report from Study
  Country: JP (occurrence: JP)
  Receive Date: 20130110
  Receipt Date: 20140314
  Transmission Date: 20141002
  Serious: Yes (Hospitalization, Other)
  Sender: FDA-Public Use
  Company Number: JP-AMGEN-JPNCT2012084418

PATIENT
  Age: 78 Year
  Sex: Male
  Weight: 72 kg

DRUGS (23)
  1. DARBEPOETIN ALFA [Suspect]
     Indication: NEPHROGENIC ANAEMIA
     Dosage: 60 MUG, QD
     Route: 058
     Dates: start: 20101108
  2. ZYLORIC [Concomitant]
     Dosage: UNK
     Route: 048
  3. URSO [Concomitant]
     Dosage: UNK
     Route: 048
  4. PLAVIX [Concomitant]
     Dosage: UNK
     Route: 048
  5. BEZATOL [Concomitant]
     Dosage: UNK
     Route: 048
  6. AMBROXOL HYDROCHLORIDE [Concomitant]
     Dosage: UNK
     Route: 048
  7. SELARA [Concomitant]
     Dosage: UNK
     Route: 048
  8. FUROSEMIDE [Concomitant]
     Indication: RENAL FAILURE CHRONIC
     Dosage: UNK
     Route: 048
  9. MAINTATE [Concomitant]
     Dosage: UNK
     Route: 048
  10. ADALAT CR [Concomitant]
     Dosage: UNK
     Route: 048
  11. CONIEL [Concomitant]
     Dosage: UNK
     Route: 048
  12. IRBETAN [Concomitant]
     Dosage: UNK
     Route: 048
  13. CARDENALIN [Concomitant]
     Dosage: UNK
     Route: 048
  14. GASTER D [Concomitant]
     Dosage: UNK
     Route: 048
  15. MUCOSTA [Concomitant]
     Dosage: UNK
     Route: 048
  16. HARNAL [Concomitant]
     Dosage: UNK
     Route: 048
  17. PANALDINE [Concomitant]
     Dosage: UNK
     Route: 048
  18. BAYASPIRIN [Concomitant]
     Dosage: UNK
     Route: 048
  19. LUPRAC [Concomitant]
     Dosage: UNK
     Route: 048
  20. FEBURIC [Concomitant]
     Dosage: UNK
     Route: 048
  21. EVIPROSTAT N [Concomitant]
     Dosage: UNK
     Route: 048
     Dates: end: 20111205
  22. ELSAMET [Concomitant]
     Dosage: UNK
     Route: 048
  23. PLETAAL [Concomitant]
     Dosage: UNK
     Route: 048

REACTIONS (17)
  - Iron deficiency anaemia [Recovering/Resolving]
  - Anaemia [Recovering/Resolving]
  - Pneumonia [Recovered/Resolved]
  - Hyperkalaemia [Recovering/Resolving]
  - Pneumonia [Recovered/Resolved]
  - Rhabdomyolysis [Recovered/Resolved]
  - Cardiac failure chronic [Recovering/Resolving]
  - Hepatic function abnormal [Recovered/Resolved]
  - Benign prostatic hyperplasia [Recovering/Resolving]
  - Hyperkalaemia [Recovering/Resolving]
  - Angina pectoris [Recovering/Resolving]
  - Nasopharyngitis [Recovered/Resolved]
  - Hypertension [Recovering/Resolving]
  - Cardiac failure [Recovered/Resolved]
  - Cardiac failure chronic [Recovered/Resolved]
  - Subdural haematoma [Recovered/Resolved]
  - Dry skin [Recovering/Resolving]
